FAERS Safety Report 7787709-7 (Version None)
Quarter: 2011Q3

REPORT INFORMATION
  Report Type: 
  Country: None (occurrence: None)
  Receive Date: 20110929
  Receipt Date: 20110927
  Transmission Date: 20111222
  Serious: Yes (Other)
  Sender: FDA-Public Use
  Company Number: DE-MERCK-1109DEU00097

PATIENT
  Age: 17 Month
  Sex: Male

DRUGS (11)
  1. CANCIDAS [Suspect]
     Indication: SEPSIS
     Route: 041
     Dates: start: 20110922, end: 20110922
  2. CLONAZEPAM [Concomitant]
     Route: 065
  3. VALPROATE SODIUM [Concomitant]
     Route: 065
  4. CANCIDAS [Suspect]
     Route: 041
     Dates: start: 20110923
  5. MOVIPREP [Concomitant]
     Route: 065
  6. MEROPENEM [Concomitant]
     Route: 065
  7. VANCOMYCIN [Concomitant]
     Route: 065
  8. CANCIDAS [Suspect]
     Indication: CANDIDIASIS
     Route: 041
     Dates: start: 20110922, end: 20110922
  9. CANCIDAS [Suspect]
     Route: 041
     Dates: start: 20110923
  10. PERENTEROL [Concomitant]
     Route: 065
  11. TOPIRAMATE [Concomitant]
     Route: 065

REACTIONS (3)
  - DEVICE RELATED INFECTION [None]
  - CHOLESTASIS [None]
  - GAMMA-GLUTAMYLTRANSFERASE INCREASED [None]
